FAERS Safety Report 6694306-3 (Version None)
Quarter: 2010Q2

REPORT INFORMATION
  Report Type: 
  Country: None (occurrence: None)
  Receive Date: 20100423
  Receipt Date: 20100419
  Transmission Date: 20101027
  Serious: Yes (Hospitalization)
  Sender: FDA-Public Use
  Company Number: FR-PFIZER INC-2009168265

PATIENT
  Age: 35 Year
  Sex: Male
  Weight: 80 kg

DRUGS (7)
  1. MEDROL [Suspect]
     Indication: PNEUMOCYSTIS JIROVECI PNEUMONIA
     Dosage: UNK
     Route: 048
     Dates: start: 20081210, end: 20081231
  2. TRUVADA [Suspect]
     Indication: ANTIRETROVIRAL THERAPY
     Dosage: UNK
     Route: 048
     Dates: start: 20081216, end: 20090102
  3. REYATAZ [Suspect]
     Indication: ANTIRETROVIRAL THERAPY
     Dosage: UNK
     Route: 048
     Dates: start: 20081216, end: 20090102
  4. NORVIR [Suspect]
     Indication: ANTIRETROVIRAL THERAPY
     Dosage: UNK
     Route: 048
     Dates: start: 20081216, end: 20090102
  5. BACTRIM [Suspect]
     Indication: PNEUMOCYSTIS JIROVECI PNEUMONIA
     Dosage: UNK
     Route: 048
     Dates: start: 20081206, end: 20090102
  6. IMOVANE [Suspect]
     Dosage: UNK
     Route: 048
     Dates: start: 20081218, end: 20081231
  7. ATARAX [Concomitant]
     Indication: PRURIGO
     Dosage: UNK
     Dates: start: 20081216, end: 20081224

REACTIONS (4)
  - ARTHRALGIA [None]
  - MYALGIA [None]
  - NEUROPATHY PERIPHERAL [None]
  - PYREXIA [None]
